FAERS Safety Report 10168106 (Version 1)
Quarter: 2014Q2

REPORT INFORMATION
  Report Type: Spontaneous
  Country: US (occurrence: US)
  Receive Date: 20140512
  Receipt Date: 20140512
  Transmission Date: 20141212
  Serious: Yes (Hospitalization, Other)
  Sender: FDA-Public Use
  Company Number: US-GILEAD-2014-0102056

PATIENT
  Age: 66 Year
  Sex: Female

DRUGS (18)
  1. LETAIRIS [Suspect]
     Indication: PULMONARY HYPERTENSION
     Dosage: 5 MG, QD
     Route: 065
     Dates: start: 20120924
  2. ADCIRCA [Concomitant]
  3. SYMBICORT [Concomitant]
  4. ZOLPIDEM [Concomitant]
  5. CALAN                              /00014302/ [Concomitant]
  6. ZINC SULFATE [Concomitant]
  7. OXYCODONE [Concomitant]
  8. SENOKOT                            /00571901/ [Concomitant]
  9. LANTUS [Concomitant]
  10. NOVOLOG [Concomitant]
  11. ALBUTEROL W/IPRATROPIUM [Concomitant]
  12. LEVOTHYROXINE [Concomitant]
  13. NYSTATIN [Concomitant]
  14. RENVELA [Concomitant]
  15. BUMETANIDE [Concomitant]
  16. CHOLECALCIFEROL [Concomitant]
  17. CARDURA [Concomitant]
  18. CATAPRES                           /00171102/ [Concomitant]

REACTIONS (2)
  - Fall [Unknown]
  - Femur fracture [Unknown]
